FAERS Safety Report 7149114-6 (Version None)
Quarter: 2010Q4

REPORT INFORMATION
  Report Type: 
  Country: None (occurrence: None)
  Receive Date: 20101209
  Receipt Date: 20101202
  Transmission Date: 20110411
  Serious: Yes (Other)
  Sender: FDA-Public Use
  Company Number: US-MERCK-0708USA02440

PATIENT
  Age: 49 Year
  Sex: Female
  Weight: 85 kg

DRUGS (3)
  1. FOSAMAX [Suspect]
     Indication: OSTEOPOROSIS
     Route: 048
     Dates: start: 20030101, end: 20070201
  2. ACTONEL [Concomitant]
     Indication: OSTEOPOROSIS
     Route: 048
     Dates: start: 20030101, end: 20060101
  3. ACTONEL [Concomitant]
     Route: 048
     Dates: start: 20070101

REACTIONS (27)
  - ANKLE FRACTURE [None]
  - BACK PAIN [None]
  - CEREBROVASCULAR ACCIDENT [None]
  - CHEST PAIN [None]
  - CHRONIC OBSTRUCTIVE PULMONARY DISEASE [None]
  - COSTOCHONDRITIS [None]
  - DEHYDRATION [None]
  - DRY MOUTH [None]
  - EAR INFECTION [None]
  - GINGIVAL DISORDER [None]
  - HEADACHE [None]
  - HIATUS HERNIA [None]
  - HYPOAESTHESIA [None]
  - IMPAIRED HEALING [None]
  - INTERVERTEBRAL DISC DISPLACEMENT [None]
  - INTERVERTEBRAL DISC PROTRUSION [None]
  - LOOSE TOOTH [None]
  - MUSCLE SPASMS [None]
  - OSTEONECROSIS OF JAW [None]
  - OSTEOPENIA [None]
  - PAIN IN EXTREMITY [None]
  - PARAESTHESIA [None]
  - PERICARDITIS [None]
  - SHOULDER OPERATION [None]
  - SINUSITIS [None]
  - THYROID DISORDER [None]
  - THYROID NEOPLASM [None]
